FAERS Safety Report 7765251-7 (Version None)
Quarter: 2011Q3

REPORT INFORMATION
  Report Type: 
  Country: None (occurrence: None)
  Receive Date: 20110921
  Receipt Date: 20110818
  Transmission Date: 20111222
  Serious: Yes (Other)
  Sender: FDA-Public Use
  Company Number: JP-GLAXOSMITHKLINE-B0741198A

PATIENT
  Sex: Male

DRUGS (12)
  1. AMOBAN [Concomitant]
     Dosage: 10MG PER DAY
     Route: 048
     Dates: start: 20110711
  2. TOLEDOMIN [Concomitant]
     Dosage: 100MG PER DAY
     Route: 048
     Dates: start: 20110711
  3. SENNOSIDE [Concomitant]
     Dosage: 24MG PER DAY
     Route: 048
     Dates: start: 20110711
  4. LITHIUM CARBONATE [Concomitant]
     Dosage: 800MG PER DAY
     Route: 048
     Dates: start: 20110711
  5. CLONAZEPAM [Concomitant]
     Dosage: 2MG PER DAY
     Route: 048
     Dates: start: 20110711
  6. RONFLEMAN [Concomitant]
     Dosage: .25MG PER DAY
     Route: 048
     Dates: start: 20110711
  7. LAMICTAL [Suspect]
     Dosage: 50MG PER DAY
     Route: 048
     Dates: start: 20110725, end: 20110807
  8. LAMICTAL [Suspect]
     Dosage: 100MG PER DAY
     Route: 048
     Dates: start: 20110808, end: 20110816
  9. SEROQUEL [Concomitant]
     Dosage: 200MG PER DAY
     Route: 048
     Dates: start: 20110711
  10. LAMICTAL [Suspect]
     Indication: BIPOLAR DISORDER
     Dosage: 25MG PER DAY
     Route: 048
     Dates: start: 20110711, end: 20110724
  11. NITRAZEPAM [Concomitant]
     Dosage: 10MG PER DAY
     Route: 048
     Dates: start: 20110711
  12. PANTOSIN [Concomitant]
     Dosage: 300MG PER DAY
     Route: 048
     Dates: start: 20110711

REACTIONS (4)
  - CHEILITIS [None]
  - CHAPPED LIPS [None]
  - RASH GENERALISED [None]
  - GLOSSITIS [None]
